FAERS Safety Report 16940080 (Version 1)
Quarter: 2019Q4

REPORT INFORMATION
  Report Type: Report from Study
  Country: US (occurrence: US)
  Receive Date: 20191021
  Receipt Date: 20191021
  Transmission Date: 20200122
  Serious: Yes (Other)
  Sender: FDA-Public Use
  Company Number: US-APNAR-000023

PATIENT
  Age: 9 Year
  Sex: Female

DRUGS (2)
  1. FLUOXETINE [Suspect]
     Active Substance: FLUOXETINE HYDROCHLORIDE
     Indication: DEPRESSION
     Route: 048
  2. SERTRALINE [Suspect]
     Active Substance: SERTRALINE HYDROCHLORIDE
     Indication: DEPRESSION
     Route: 048

REACTIONS (6)
  - Intentional self-injury [Unknown]
  - Anger [Unknown]
  - Depression [Recovering/Resolving]
  - Treatment failure [Unknown]
  - Mood swings [Unknown]
  - Anxiety [Recovering/Resolving]
